FAERS Safety Report 9473859 (Version 2)
Quarter: 2013Q3

REPORT INFORMATION
  Report Type: Spontaneous
  Country: FR (occurrence: FR)
  Receive Date: 20130823
  Receipt Date: 20130903
  Transmission Date: 20140515
  Serious: Yes (Hospitalization)
  Sender: FDA-Public Use
  Company Number: PHHY2013FR088397

PATIENT
  Age: 15 Year
  Sex: Female

DRUGS (4)
  1. PARACETAMOL [Suspect]
     Dosage: 8 G
  2. IBUPROFEN [Suspect]
     Dosage: 2 G
  3. NAPROXEN [Suspect]
     Dosage: 4.4 G
  4. PSEUDOEPHEDRINE [Suspect]
     Dosage: 300 MG

REACTIONS (6)
  - Renal failure acute [Recovered/Resolved]
  - Haematuria [Unknown]
  - Polyuria [Unknown]
  - Toxicity to various agents [Unknown]
  - Drug level increased [Unknown]
  - Intentional overdose [Unknown]
